FAERS Safety Report 7824206-4 (Version None)
Quarter: 2011Q4

REPORT INFORMATION
  Report Type: 
  Country: None (occurrence: None)
  Receive Date: 20111014
  Receipt Date: 20110929
  Transmission Date: 20120403
  Serious: Yes (Death)
  Sender: FDA-Public Use
  Company Number: JP-2011-10418

PATIENT
  Age: 90 Year
  Sex: Female
  Weight: 42 kg

DRUGS (4)
  1. PLAVIX [Suspect]
     Dosage: 25 MG MILLIGRAM(S), BID, ORAL
     Route: 048
  2. ASPIRIN [Suspect]
     Dosage: 100 MG MILLIGRAM(S), QD, ORAL
     Route: 048
     Dates: start: 20101222, end: 20110311
  3. ALFAROL (ALFACALCIDO) [Suspect]
     Dosage: ORAL
     Route: 048
  4. PLETAL [Suspect]
     Dosage: 50 MG MILLIGRAM(S), TID, ORAL
     Route: 048
     Dates: start: 20101230, end: 20110121

REACTIONS (5)
  - CATHETER SITE HAEMATOMA [None]
  - HAEMORRHAGIC ANAEMIA [None]
  - PNEUMOTHORAX [None]
  - LYMPHOCYTE STIMULATION TEST POSITIVE [None]
  - INTERSTITIAL LUNG DISEASE [None]
